FAERS Safety Report 6487252-1 (Version None)
Quarter: 2009Q4

REPORT INFORMATION
  Report Type: 
  Country: None (occurrence: None)
  Receive Date: 20091210
  Receipt Date: 20091202
  Transmission Date: 20100525
  Serious: Yes (Hospitalization)
  Sender: FDA-Public Use
  Company Number: US-JNJFOC-20091201756

PATIENT
  Sex: Female
  Weight: 62.6 kg

DRUGS (17)
  1. DURAGESIC-100 [Suspect]
     Route: 062
  2. DURAGESIC-100 [Suspect]
     Indication: PAIN
     Route: 062
  3. DURAGESIC-100 [Suspect]
     Dosage: 50 PLUS 25 UG/HR
     Route: 062
  4. DURAGESIC-100 [Suspect]
     Route: 062
  5. LEVOTHYROXINE SODIUM [Concomitant]
     Indication: THYROID DISORDER
     Route: 048
  6. HUMIRA [Concomitant]
     Indication: SYSTEMIC LUPUS ERYTHEMATOSUS
  7. CRESTOR [Concomitant]
     Indication: BLOOD CHOLESTEROL
     Route: 048
  8. NEURONTIN [Concomitant]
     Indication: PAIN
     Route: 048
  9. ESTRADIOL [Concomitant]
     Indication: HORMONE REPLACEMENT THERAPY
     Route: 048
  10. DATRIL [Concomitant]
     Route: 048
  11. XANAX [Concomitant]
     Route: 048
  12. CELEXA [Concomitant]
     Indication: DEPRESSION
     Route: 048
  13. LISINOPRIL [Concomitant]
     Indication: HYPERTENSION
     Route: 048
  14. AZULFIDINE [Concomitant]
     Indication: ARTHRITIS
     Route: 048
  15. PREDNISONE [Concomitant]
     Indication: ARTHRITIS
     Route: 048
  16. PROVIGIL [Concomitant]
     Indication: SOMNOLENCE
     Route: 048
  17. OXYCODONE [Concomitant]
     Indication: PAIN
     Dosage: 5/325
     Route: 048

REACTIONS (4)
  - ENERGY INCREASED [None]
  - HOSPITALISATION [None]
  - INADEQUATE ANALGESIA [None]
  - TREMOR [None]
